FAERS Safety Report 16997017 (Version 6)
Quarter: 2021Q1

REPORT INFORMATION
  Report Type: Report from Study
  Country: None (occurrence: NL)
  Receive Date: 20191105
  Receipt Date: 20210204
  Transmission Date: 20210419
  Serious: Yes (Other)
  Sender: FDA-Public Use
  Company Number: NL-ABBVIE-17K-114-1956199-00

PATIENT
  Age: 59 Year
  Sex: Female

DRUGS (5)
  1. DUODOPA [Suspect]
     Active Substance: CARBIDOPA\LEVODOPA
     Indication: PARKINSON^S DISEASE
     Dosage: MD: 5.6, CONTINUOUS DOSE:2.7, EXTRA DOSE: 3.0, NIGHT DOSE: 2.0, EXTRA DOS AT NIGHT:2.5
     Route: 050
     Dates: start: 20141208, end: 201412
  2. DUODOPA [Suspect]
     Active Substance: CARBIDOPA\LEVODOPA
     Dosage: CD 3.1;ED 1.0;MD 5.6;CND 2.3;END 2.0?24 HOUR PUMP USE
     Route: 050
     Dates: start: 20141211
  3. DUODOPA [Suspect]
     Active Substance: CARBIDOPA\LEVODOPA
     Dosage: CD 3.1, ED 2.5, CND 2.2
     Route: 050
     Dates: start: 201412, end: 201412
  4. DUODOPA [Suspect]
     Active Substance: CARBIDOPA\LEVODOPA
     Dosage: MD 5.6 CD 2 ED 2.5 CND 2.7 END 3
     Route: 050
     Dates: start: 201412, end: 201412
  5. DUODOPA [Suspect]
     Active Substance: CARBIDOPA\LEVODOPA
     Dosage: MD 5.0 CD NIGHT 1.8, ED NIGHT 2.0 CD DAY 2.5, ED DAY 1.0
     Route: 050

REACTIONS (28)
  - Wrong technique in device usage process [Not Recovered/Not Resolved]
  - Muscle rigidity [Not Recovered/Not Resolved]
  - Transient ischaemic attack [Not Recovered/Not Resolved]
  - Fluid intake reduced [Recovered/Resolved]
  - Anxiety [Not Recovered/Not Resolved]
  - Dyskinesia [Recovering/Resolving]
  - Speech disorder [Not Recovered/Not Resolved]
  - Insomnia [Not Recovered/Not Resolved]
  - Sleep disorder [Not Recovered/Not Resolved]
  - Therapeutic product effect variable [Not Recovered/Not Resolved]
  - Unevaluable event [Unknown]
  - Stoma site haemorrhage [Not Recovered/Not Resolved]
  - Memory impairment [Unknown]
  - Stress [Not Recovered/Not Resolved]
  - Decreased appetite [Not Recovered/Not Resolved]
  - On and off phenomenon [Not Recovered/Not Resolved]
  - Malnutrition [Not Recovered/Not Resolved]
  - Aphasia [Not Recovered/Not Resolved]
  - Memory impairment [Not Recovered/Not Resolved]
  - Malaise [Not Recovered/Not Resolved]
  - Parkinson^s disease [Not Recovered/Not Resolved]
  - Mobility decreased [Not Recovered/Not Resolved]
  - Hypophagia [Recovered/Resolved]
  - Initial insomnia [Not Recovered/Not Resolved]
  - Tremor [Not Recovered/Not Resolved]
  - Hallucination [Recovering/Resolving]
  - Malaise [Recovering/Resolving]
  - Fibroma [Not Recovered/Not Resolved]

NARRATIVE: CASE EVENT DATE: 20191022
